APPROVED DRUG PRODUCT: FULVICIN P/G
Active Ingredient: GRISEOFULVIN, ULTRAMICROSIZE
Strength: 250MG
Dosage Form/Route: TABLET;ORAL
Application: A061996 | Product #002 | TE Code: AB
Applicant: CHARTWELL RX SCIENCES LLC
Approved: Approved Prior to Jan 1, 1982 | RLD: No | RS: No | Type: RX